FAERS Safety Report 7630979-6 (Version None)
Quarter: 2011Q3

REPORT INFORMATION
  Report Type: 
  Country: None (occurrence: None)
  Receive Date: 20110725
  Receipt Date: 20110713
  Transmission Date: 20111222
  Serious: Yes (Hospitalization)
  Sender: FDA-Public Use
  Company Number: US-BIOGENIDEC-2011BI025791

PATIENT
  Age: 32 Year
  Sex: Female

DRUGS (5)
  1. AVONEX [Suspect]
     Route: 030
     Dates: end: 20090101
  2. AVONEX [Suspect]
     Indication: MULTIPLE SCLEROSIS
     Route: 030
     Dates: start: 20010101
  3. BACLOFEN [Concomitant]
  4. PROZAC [Concomitant]
  5. NEURONTIN [Concomitant]

REACTIONS (4)
  - OBSTETRICAL PULMONARY EMBOLISM [None]
  - HEART RATE DECREASED [None]
  - PREMATURE RUPTURE OF MEMBRANES [None]
  - HEART RATE INCREASED [None]
